FAERS Safety Report 10034384 (Version 1)
Quarter: 2014Q1

REPORT INFORMATION
  Report Type: Spontaneous
  Country: FR (occurrence: FR)
  Receive Date: 20140325
  Receipt Date: 20140325
  Transmission Date: 20141002
  Serious: Yes (Other)
  Sender: FDA-Public Use
  Company Number: FR-ROCHE-1369109

PATIENT
  Age: 40 Year
  Sex: Male

DRUGS (3)
  1. ZELBORAF [Suspect]
     Indication: PRODUCT USED FOR UNKNOWN INDICATION
     Route: 065
     Dates: start: 201305
  2. ZELBORAF [Suspect]
     Dosage: 2X3/DAY
     Route: 065
  3. TAFINLAR [Concomitant]

REACTIONS (2)
  - Toxic skin eruption [Unknown]
  - Uveitis [Unknown]
